FAERS Safety Report 6609199-X (Version None)
Quarter: 2010Q1

REPORT INFORMATION
  Report Type: 
  Country: None (occurrence: None)
  Receive Date: 20100301
  Receipt Date: 20100219
  Transmission Date: 20100710
  Serious: Yes (Hospitalization)
  Sender: FDA-Public Use
  Company Number: FR-AMGEN-US393708

PATIENT
  Sex: Female
  Weight: 46 kg

DRUGS (3)
  1. ENBREL [Suspect]
     Indication: RHEUMATOID ARTHRITIS
     Dosage: 50 MG (FREQUENCY UNKNOWN)
     Route: 058
     Dates: start: 20080401, end: 20100201
  2. CORTANCYL [Concomitant]
     Route: 048
     Dates: start: 20010101, end: 20100201
  3. CORTANCYL [Concomitant]
     Dosage: UNKNOWN (}3 MG PER DAY)
     Route: 048
     Dates: start: 20100201

REACTIONS (3)
  - GLOMERULONEPHRITIS PROLIFERATIVE [None]
  - HAEMATURIA [None]
  - RENAL FAILURE [None]
